FAERS Safety Report 16290329 (Version 2)
Quarter: 2019Q3

REPORT INFORMATION
  Report Type: Spontaneous
  Country: US (occurrence: US)
  Receive Date: 20190509
  Receipt Date: 20190805
  Transmission Date: 20191004
  Serious: Yes (Other)
  Sender: FDA-Public Use
  Company Number: US-MYLANLABS-2019M1041851

PATIENT
  Sex: Female
  Weight: 67 kg

DRUGS (3)
  1. TIOTIXENE [Suspect]
     Active Substance: THIOTHIXENE
     Indication: MAJOR DEPRESSION
  2. TIOTIXENE [Suspect]
     Active Substance: THIOTHIXENE
     Indication: POST-TRAUMATIC STRESS DISORDER
     Dosage: UNK
     Dates: start: 1996
  3. TIOTIXENE [Suspect]
     Active Substance: THIOTHIXENE
     Indication: ANXIETY

REACTIONS (2)
  - Drug dependence [Unknown]
  - Withdrawal syndrome [Unknown]
